FAERS Safety Report 26119752 (Version 1)
Quarter: 2025Q4

REPORT INFORMATION
  Report Type: Spontaneous
  Country: US (occurrence: US)
  Receive Date: 20251204
  Receipt Date: 20251204
  Transmission Date: 20260117
  Serious: No
  Sender: RANBAXY
  Company Number: US-SUN PHARMACEUTICAL INDUSTRIES LTD-2025R1-537131

PATIENT
  Sex: Female
  Weight: 63.492 kg

DRUGS (2)
  1. LENALIDOMIDE [Suspect]
     Active Substance: LENALIDOMIDE
     Indication: Plasma cell myeloma
     Dosage: 10 MILLIGRAM, DAILY
     Route: 048
     Dates: start: 20251016, end: 20251103
  2. LENALIDOMIDE [Suspect]
     Active Substance: LENALIDOMIDE
     Dosage: 5 MILLIGRAM, DAILY
     Route: 048

REACTIONS (2)
  - Dizziness [Recovering/Resolving]
  - White blood cell count decreased [Recovering/Resolving]
